FAERS Safety Report 10074656 (Version 1)
Quarter: 2014Q2

REPORT INFORMATION
  Report Type: Spontaneous
  Country: US (occurrence: US)
  Receive Date: 20140414
  Receipt Date: 20140414
  Transmission Date: 20141212
  Serious: Yes (Other)
  Sender: FDA-Public Use
  Company Number: US-MERCK-1404USA004371

PATIENT
  Sex: Male

DRUGS (7)
  1. PEGINTRON [Suspect]
     Indication: HEPATITIS C
     Dosage: 0.5 ML, QW
     Dates: start: 20140319
  2. REBETOL [Suspect]
     Indication: HEPATITIS C
     Dosage: 1200 MG, BID
     Route: 048
     Dates: start: 20140319
  3. SOVALDI [Concomitant]
     Dosage: 400 MG, UNK
  4. ATENOLOL [Concomitant]
  5. VITAMIN D (UNSPECIFIED) [Concomitant]
  6. ASPIRIN [Concomitant]
  7. OMEPRAZOLE [Concomitant]
     Route: 048

REACTIONS (2)
  - Peroneal nerve palsy [Unknown]
  - Muscular weakness [Unknown]
